FAERS Safety Report 7357211-5 (Version None)
Quarter: 2011Q1

REPORT INFORMATION
  Report Type: 
  Country: None (occurrence: None)
  Receive Date: 20110311
  Receipt Date: 20110311
  Transmission Date: 20110831
  Serious: No
  Sender: FDA-Public Use
  Company Number: None

PATIENT
  Age: 43 Year
  Sex: Female
  Weight: 86.637 kg

DRUGS (2)
  1. FEXOFENADINE [Suspect]
     Indication: URTICARIA
     Dosage: QD PO
     Route: 048
     Dates: start: 20100819, end: 20100930
  2. FEXOFENADINE [Suspect]
     Indication: RHINITIS ALLERGIC
     Dosage: QD PO
     Route: 048
     Dates: start: 20100819, end: 20100930

REACTIONS (2)
  - DRUG EFFECT DECREASED [None]
  - PRODUCT SUBSTITUTION ISSUE [None]
